FAERS Safety Report 6667236-0 (Version None)
Quarter: 2010Q2

REPORT INFORMATION
  Report Type: 
  Country: None (occurrence: None)
  Receive Date: 20100405
  Receipt Date: 20100329
  Transmission Date: 20101027
  Serious: Yes (Other)
  Sender: FDA-Public Use
  Company Number: US-BAYER-201013656BCC

PATIENT
  Age: 45 Year
  Sex: Male
  Weight: 82 kg

DRUGS (2)
  1. ALEVE (CAPLET) [Suspect]
     Indication: BACK PAIN
     Dosage: AS USED: 440 MG  UNIT DOSE: 220 MG
     Route: 048
     Dates: start: 20100328
  2. STEROID [Concomitant]

REACTIONS (6)
  - HYPERSENSITIVITY [None]
  - HYPOTENSION [None]
  - LOSS OF CONSCIOUSNESS [None]
  - NAUSEA [None]
  - PRURITUS [None]
  - RASH [None]
